FAERS Safety Report 18952733 (Version 1)
Quarter: 2021Q1

REPORT INFORMATION
  Report Type: Spontaneous
  Country: US (occurrence: US)
  Receive Date: 20210226
  Receipt Date: 20210226
  Transmission Date: 20210420
  Serious: Yes (Hospitalization)
  Sender: FDA-Public Use
  Company Number: None

PATIENT
  Sex: Female

DRUGS (12)
  1. INVOKANA [Concomitant]
     Active Substance: CANAGLIFLOZIN
     Dates: start: 20201230
  2. IRBESARTAN. [Concomitant]
     Active Substance: IRBESARTAN
     Dates: start: 20201005
  3. TACROLIMUS. [Concomitant]
     Active Substance: TACROLIMUS
     Dates: start: 20201026
  4. AMLODIPINE [Concomitant]
     Active Substance: AMLODIPINE BESYLATE
     Dates: start: 20201105
  5. HUMIRA [Suspect]
     Active Substance: ADALIMUMAB
     Indication: CROHN^S DISEASE
     Dosage: ?          OTHER FREQUENCY:QOW;?
     Route: 058
     Dates: start: 20200803
  6. CARVEDILOL. [Concomitant]
     Active Substance: CARVEDILOL
     Dates: start: 20201017
  7. SIMVASTATIN. [Concomitant]
     Active Substance: SIMVASTATIN
     Dates: start: 20210131
  8. METFORMIN [Concomitant]
     Active Substance: METFORMIN HYDROCHLORIDE
     Dates: start: 20200817
  9. BUDESONIDE. [Concomitant]
     Active Substance: BUDESONIDE
     Dates: start: 20210223
  10. LEVOTHYROXIN [Concomitant]
     Active Substance: LEVOTHYROXINE
     Dates: start: 20200811
  11. LANTUS [Concomitant]
     Active Substance: INSULIN GLARGINE
     Dates: start: 20200817
  12. CLOBETASOL [Concomitant]
     Active Substance: CLOBETASOL
     Dates: start: 20210131

REACTIONS (2)
  - Gastrointestinal ulcer [None]
  - Frequent bowel movements [None]
